FAERS Safety Report 5499943-X (Version None)
Quarter: 2007Q4

REPORT INFORMATION
  Report Type: 
  Country: None (occurrence: None)
  Receive Date: 20071026
  Receipt Date: 20071018
  Transmission Date: 20080405
  Serious: Yes (Other)
  Sender: FDA-Public Use
  Company Number: US-PFIZER INC-2007088475

PATIENT
  Sex: Male
  Weight: 95.3 kg

DRUGS (6)
  1. LIPITOR [Interacting]
     Indication: ARTERIOSCLEROSIS
     Route: 048
  2. LIPITOR [Interacting]
     Indication: BLOOD CHOLESTEROL
  3. NEXIUM [Suspect]
     Dates: start: 20070801, end: 20070801
  4. ECOTRIN [Concomitant]
  5. ACIPHEX [Concomitant]
  6. ATENOLOL [Concomitant]

REACTIONS (10)
  - ADVERSE DRUG REACTION [None]
  - ASTHENIA [None]
  - BLOOD IRON ABNORMAL [None]
  - DIARRHOEA [None]
  - DRUG INTERACTION [None]
  - INFLUENZA LIKE ILLNESS [None]
  - LABORATORY TEST ABNORMAL [None]
  - NAUSEA [None]
  - SERUM FERRITIN INCREASED [None]
  - VOMITING [None]
